FAERS Safety Report 6261240-2 (Version None)
Quarter: 2009Q3

REPORT INFORMATION
  Report Type: 
  Country: None (occurrence: None)
  Receive Date: 20090709
  Receipt Date: 20090626
  Transmission Date: 20100115
  Serious: Yes (Other)
  Sender: FDA-Public Use
  Company Number: IT-PFIZER INC-2009233976

PATIENT
  Age: 47 Year

DRUGS (2)
  1. SOLU-MEDROL [Suspect]
     Indication: MULTIPLE SCLEROSIS
     Dosage: 1 UNIT, TOTAL
     Route: 042
     Dates: start: 20090610, end: 20090610
  2. TYSABRI [Concomitant]
     Dosage: 1 UNIT

REACTIONS (6)
  - BRADYCARDIA [None]
  - ERYTHEMA [None]
  - EYELID OEDEMA [None]
  - HYPERHIDROSIS [None]
  - LOSS OF CONSCIOUSNESS [None]
  - PALLOR [None]
